FAERS Safety Report 8054837-0 (Version None)
Quarter: 2012Q1

REPORT INFORMATION
  Report Type: 
  Country: None (occurrence: None)
  Receive Date: 20120112
  Receipt Date: 20111006
  Transmission Date: 20120608
  Serious: Yes (Death, Hospitalization)
  Sender: FDA-Public Use
  Company Number: 1068456

PATIENT
  Age: 45 Year
  Sex: Male
  Weight: 80 kg

DRUGS (3)
  1. FOLIDAN [Concomitant]
  2. OXALIPLATIN [Suspect]
     Indication: COLON CANCER STAGE IV
     Dosage: 14 DAY, INTRAVENOUS (NOT OTHERWISE SPECIFIED)
     Route: 042
     Dates: start: 20101122, end: 20101122
  3. FLUOROURACIL [Suspect]
     Indication: COLON CANCER STAGE IV
     Dosage: 14 DAY, INTRAVENOUS (NOT OTHERWISE SPECIFIED)
     Route: 042
     Dates: start: 20101122, end: 20101122

REACTIONS (1)
  - THROMBOCYTOPENIA [None]
